FAERS Safety Report 24141359 (Version 1)
Quarter: 2024Q3

REPORT INFORMATION
  Report Type: Report from Study
  Country: CH (occurrence: CH)
  Receive Date: 20240726
  Receipt Date: 20240726
  Transmission Date: 20241016
  Serious: Yes (Death)
  Sender: CSL BEHRING
  Company Number: CH-BEH-2024176284

PATIENT
  Sex: Male
  Weight: 76 kg

DRUGS (1)
  1. HIZENTRA [Suspect]
     Active Substance: HUMAN IMMUNOGLOBULIN G
     Indication: Chronic inflammatory demyelinating polyradiculoneuropathy
     Dosage: 24 G, QW
     Route: 058
     Dates: start: 20231002

REACTIONS (1)
  - Death [Fatal]
